FAERS Safety Report 23269468 (Version 1)
Quarter: 2023Q4

REPORT INFORMATION
  Report Type: Spontaneous
  Country: FR (occurrence: FR)
  Receive Date: 20231207
  Receipt Date: 20231207
  Transmission Date: 20240110
  Serious: Yes (Other)
  Sender: FDA-Public Use
  Company Number: FR-AFSSAPS-BX2023002032

PATIENT
  Age: 82 Year
  Sex: Male
  Weight: 134 kg

DRUGS (2)
  1. LEVOFLOXACIN [Suspect]
     Active Substance: LEVOFLOXACIN
     Indication: Arthritis bacterial
     Dosage: 500 MILLIGRAM
     Route: 065
     Dates: start: 20230412, end: 20230415
  2. CEFAZOLIN SODIUM [Suspect]
     Active Substance: CEFAZOLIN SODIUM
     Indication: Arthritis bacterial
     Dosage: 2 GRAM
     Route: 042
     Dates: start: 20230409, end: 20230421

REACTIONS (2)
  - Cutaneous vasculitis [Recovered/Resolved]
  - Uveitis [Recovered/Resolved]

NARRATIVE: CASE EVENT DATE: 20230415
